FAERS Safety Report 5235155-2 (Version None)
Quarter: 2007Q1

REPORT INFORMATION
  Report Type: 
  Country: None (occurrence: None)
  Receive Date: 20070207
  Receipt Date: 20070126
  Transmission Date: 20070707
  Serious: Yes (Hospitalization)
  Sender: FDA-Public Use
  Company Number: GXKR2007FR01226

PATIENT
  Age: 63 Year
  Sex: Male

DRUGS (2)
  1. DICLOFENAC (NGX) (DICLOFENAC) [Suspect]
     Indication: POLYARTHRITIS
     Dosage: 100 MG TID
  2. OMEPRAZOLE [Concomitant]

REACTIONS (13)
  - ABDOMINAL PAIN [None]
  - ANAEMIA [None]
  - C-REACTIVE PROTEIN INCREASED [None]
  - COLITIS ULCERATIVE [None]
  - COLONIC STENOSIS [None]
  - DIARRHOEA [None]
  - HYPOPROTEINAEMIA [None]
  - INTESTINAL STENOSIS [None]
  - PALLOR [None]
  - PLATELET COUNT INCREASED [None]
  - RENAL FAILURE [None]
  - RESPIRATORY DISORDER [None]
  - WEIGHT DECREASED [None]
